FAERS Safety Report 16076520 (Version 7)
Quarter: 2019Q3

REPORT INFORMATION
  Report Type: Spontaneous
  Country: US (occurrence: US)
  Receive Date: 20190315
  Receipt Date: 20190724
  Transmission Date: 20191004
  Serious: Yes (Other)
  Sender: FDA-Public Use
  Company Number: US-ABBVIE-19K-163-2700303-00

PATIENT
  Sex: Female

DRUGS (1)
  1. HUMIRA [Suspect]
     Active Substance: ADALIMUMAB
     Indication: HIDRADENITIS
     Route: 058

REACTIONS (11)
  - Hidradenitis [Recovered/Resolved]
  - Gait disturbance [Unknown]
  - Joint range of motion decreased [Unknown]
  - Stress [Unknown]
  - Emotional distress [Unknown]
  - Depression [Unknown]
  - Sensitive skin [Unknown]
  - Spondylitis [Unknown]
  - Feeling abnormal [Unknown]
  - Migraine [Unknown]
  - Anxiety [Not Recovered/Not Resolved]
